FAERS Safety Report 8856679 (Version 1)
Quarter: 2012Q4

REPORT INFORMATION
  Report Type: Spontaneous
  Country: US (occurrence: None)
  Receive Date: 20121024
  Receipt Date: 20121024
  Transmission Date: 20130627
  Serious: Yes (Hospitalization, Disabling, Other)
  Sender: FDA-Public Use
  Company Number: None

PATIENT
  Age: 62 Year
  Sex: Male
  Weight: 111.13 kg

DRUGS (2)
  1. METHYLPREDNISOLONE [Suspect]
     Indication: SHOULDER PAIN
     Dosage: three injections in July
  2. METHYLPREDNISOLONE [Suspect]
     Indication: NECK PAIN
     Dosage: three injections in July

REACTIONS (10)
  - Skin infection [None]
  - Oedema [None]
  - Rash [None]
  - VIIth nerve paralysis [None]
  - Lymphadenopathy [None]
  - Myopathy [None]
  - Headache [None]
  - Musculoskeletal stiffness [None]
  - Fatigue [None]
  - Nervous system disorder [None]
